FAERS Safety Report 4558199-2 (Version None)
Quarter: 2005Q1

REPORT INFORMATION
  Report Type: 
  Country: None (occurrence: None)
  Receive Date: 20050107
  Receipt Date: 20041013
  Transmission Date: 20050727
  Serious: Yes (Hospitalization)
  Sender: FDA-Public Use
  Company Number: 04P-163-0277893-00

PATIENT
  Age: 16 Year
  Sex: Female

DRUGS (1)
  1. OMNICEF [Suspect]
     Indication: SINUSITIS
     Dosage: 300 MG , PER ORAL
     Route: 048
     Dates: start: 20040506, end: 20040501

REACTIONS (1)
  - CLOSTRIDIAL INFECTION [None]
